FAERS Safety Report 9770265 (Version 1)
Quarter: 2013Q4

REPORT INFORMATION
  Report Type: Spontaneous
  Country: US (occurrence: US)
  Receive Date: 20131218
  Receipt Date: 20131218
  Transmission Date: 20140711
  Serious: Yes (Other)
  Sender: FDA-Public Use
  Company Number: US-VERTEX PHARMACEUTICALS INC-2013-011847

PATIENT
  Sex: 0

DRUGS (5)
  1. INCIVEK [Suspect]
     Indication: CHRONIC HEPATITIS C
     Dosage: 750 MG, TID
  2. PEGYLATED INTERFERON ALFA-2A [Suspect]
     Indication: CHRONIC HEPATITIS C
  3. RIBAVIRIN [Suspect]
     Indication: CHRONIC HEPATITIS C
  4. TACROLIMUS [Concomitant]
     Indication: IMMUNOSUPPRESSION
  5. CYCLOSPORINE [Concomitant]
     Indication: IMMUNOSUPPRESSION

REACTIONS (5)
  - Hepatic cirrhosis [Unknown]
  - Liver transplant [Unknown]
  - Off label use [Unknown]
  - Hepatitis C [Unknown]
  - Pancytopenia [Unknown]
